FAERS Safety Report 25461005 (Version 2)
Quarter: 2025Q2

REPORT INFORMATION
  Report Type: Spontaneous
  Country: JP (occurrence: JP)
  Receive Date: 20250620
  Receipt Date: 20250623
  Transmission Date: 20250717
  Serious: Yes (Other)
  Sender: EISAI
  Company Number: JP-Eisai-EC-2025-191412

PATIENT
  Age: 58 Year
  Sex: Male

DRUGS (2)
  1. LENVATINIB [Suspect]
     Active Substance: LENVATINIB
     Indication: Papillary thyroid cancer
     Dates: start: 202003, end: 202104
  2. LENVATINIB [Suspect]
     Active Substance: LENVATINIB
     Dates: start: 2021

REACTIONS (1)
  - Osteoradionecrosis [Recovered/Resolved]

NARRATIVE: CASE EVENT DATE: 20200701
